FAERS Safety Report 7457704-6 (Version None)
Quarter: 2011Q2

REPORT INFORMATION
  Report Type: 
  Country: None (occurrence: None)
  Receive Date: 20110504
  Receipt Date: 20110425
  Transmission Date: 20111010
  Serious: Yes (Other)
  Sender: FDA-Public Use
  Company Number: IT-TEVA-278906ISR

PATIENT
  Age: 27 Year
  Sex: Female

DRUGS (3)
  1. CARBAMAZEPINE [Suspect]
     Dosage: 600 MILLIGRAM;
  2. LACOSAMIDE [Suspect]
     Indication: GRAND MAL CONVULSION
     Dosage: 300 MILLIGRAM;
  3. CARBAMAZEPINE [Suspect]
     Indication: CONVULSION
     Dosage: 1200 MILLIGRAM;

REACTIONS (2)
  - MYOCLONIC EPILEPSY [None]
  - MUSCULAR WEAKNESS [None]
